FAERS Safety Report 8309428 (Version 10)
Quarter: 2012Q4

REPORT INFORMATION
  Report Type: 
  Country: US (occurrence: US)
  Receive Date: 20111223
  Receipt Date: 20121126
  Transmission Date: 20130627
  Serious: Yes (Hospitalization)
  Sender: FDA-Public Use
  Company Number: US-ASTRAZENECA-2011SE76007

PATIENT
  Age: 49 Year
  Sex: Female
  Weight: 82.6 kg

DRUGS (28)
  1. NEXIUM [Suspect]
     Indication: GASTROOESOPHAGEAL REFLUX DISEASE
     Route: 048
     Dates: start: 2002
  2. NEXIUM [Suspect]
     Indication: GASTROOESOPHAGEAL REFLUX DISEASE
     Route: 048
     Dates: start: 20020305
  3. ESTRADIOL NORETHINDRONE [Concomitant]
     Dosage: 1.0 TO 0.5 MG ONE PO QD
     Route: 048
     Dates: start: 20100210
  4. CALTRATE [Concomitant]
     Dosage: 600 WITH D 600MG-200 U TABLET ONE PO BID
     Route: 048
     Dates: start: 20100210
  5. FISH OIL [Concomitant]
     Route: 048
     Dates: start: 20100210
  6. CELEXA [Concomitant]
     Route: 048
     Dates: start: 20100210
  7. FLEXERIL [Concomitant]
     Indication: PAIN
     Route: 048
     Dates: start: 20100210
  8. KLONOPIN [Concomitant]
     Indication: ANXIETY
     Dosage: 1 TO HALF PO BID/PRN
     Route: 048
     Dates: start: 20091008
  9. LORTAB [Concomitant]
     Indication: PAIN
     Dosage: 500 TO 10 MG, ONE PO Q8H PRN
     Route: 048
     Dates: start: 20091119, end: 201003
  10. LORTAB [Concomitant]
     Indication: PAIN
     Dosage: 10/500 MG ONE PO TID PRN
     Route: 048
     Dates: start: 201003
  11. OMEPRAZOLE [Concomitant]
     Route: 048
     Dates: start: 20090416, end: 201003
  12. OMEPRAZOLE [Concomitant]
     Route: 048
     Dates: start: 20100107
  13. OMEPRAZOLE [Concomitant]
     Route: 048
     Dates: start: 201003
  14. CYMBALTA [Concomitant]
     Route: 048
     Dates: end: 201003
  15. MEDROL [Concomitant]
     Dates: start: 20100128, end: 201003
  16. ROBAXIN [Concomitant]
     Indication: MUSCLE SPASMS
     Dosage: 750 MG TABLET 1 PO TID PRN
     Route: 048
     Dates: start: 20090306, end: 201003
  17. ZOLOFT [Concomitant]
     Route: 048
     Dates: start: 20090416, end: 201003
  18. NAPROSYN SODIUM [Concomitant]
     Dates: start: 20020321
  19. NAPROSYN SODIUM [Concomitant]
     Dosage: 550 MG ONE PO BID PRN WITH FOOD 7 TO 10 D AS NEEDED
     Route: 048
     Dates: start: 20090804, end: 201003
  20. LEXAPRO [Concomitant]
     Route: 048
     Dates: start: 20091217, end: 201003
  21. BUTAL/APAP/CAFF PLUS [Concomitant]
     Dates: start: 20041117
  22. GUAIFENESIN LA [Concomitant]
     Dates: start: 20010306
  23. NAPROXEN [Concomitant]
     Indication: PAIN
  24. NAPROXEN [Concomitant]
     Indication: FIBROMYALGIA
  25. NAPROXEN [Concomitant]
     Indication: PAIN
     Dates: start: 2001
  26. NAPROXEN [Concomitant]
     Indication: FIBROMYALGIA
     Dates: start: 2001
  27. XANAX [Concomitant]
     Indication: INSOMNIA
  28. STEROID [Concomitant]
     Indication: BACK PAIN
     Dates: start: 20120301

REACTIONS (6)
  - Hip fracture [Unknown]
  - Rib fracture [Unknown]
  - Bone density decreased [Unknown]
  - Pain [Unknown]
  - Osteopenia [Unknown]
  - Stress fracture [Unknown]
